FAERS Safety Report 23836007 (Version 1)
Quarter: 2024Q2

REPORT INFORMATION
  Report Type: Spontaneous
  Country: CN (occurrence: CN)
  Receive Date: 20240509
  Receipt Date: 20240509
  Transmission Date: 20240716
  Serious: Yes (Other)
  Sender: FDA-Public Use
  Company Number: CN-BAYER-2024A068798

PATIENT
  Age: 87 Year
  Sex: Male
  Weight: 76 kg

DRUGS (2)
  1. AVELOX [Suspect]
     Active Substance: MOXIFLOXACIN HYDROCHLORIDE
     Indication: Pneumonia
     Dosage: 0.4 G, QD
     Route: 048
     Dates: start: 20240324, end: 20240325
  2. PAXLOVID [Concomitant]
     Active Substance: NIRMATRELVIR\RITONAVIR
     Dosage: 1 DF, BID
     Route: 048
     Dates: start: 20240324, end: 20240328

REACTIONS (4)
  - Delirium [Recovering/Resolving]
  - Depressed level of consciousness [Recovering/Resolving]
  - Disorganised speech [Recovering/Resolving]
  - Poor quality sleep [None]

NARRATIVE: CASE EVENT DATE: 20240325
